FAERS Safety Report 7331328-3 (Version None)
Quarter: 2011Q1

REPORT INFORMATION
  Report Type: 
  Country: None (occurrence: None)
  Receive Date: 20110304
  Receipt Date: 20110223
  Transmission Date: 20110831
  Serious: Yes (Hospitalization)
  Sender: FDA-Public Use
  Company Number: US-JNJFOC-20110300046

PATIENT
  Sex: Male
  Weight: 81.65 kg

DRUGS (4)
  1. REMICADE [Suspect]
     Indication: CROHN'S DISEASE
     Route: 042
  2. HUMIRA [Concomitant]
  3. HUMIRA [Concomitant]
  4. ACETAMINOPHEN [Concomitant]

REACTIONS (1)
  - CROHN'S DISEASE [None]
